FAERS Safety Report 12434031 (Version 1)
Quarter: 2016Q2

REPORT INFORMATION
  Report Type: Spontaneous
  Country: US (occurrence: US)
  Receive Date: 20160603
  Receipt Date: 20160603
  Transmission Date: 20160815
  Serious: No
  Sender: FDA-Public Use
  Company Number: US-MDT-ADR-2015-02463

PATIENT
  Age: 50 Year
  Sex: Male

DRUGS (15)
  1. LIORESAL [Suspect]
     Active Substance: BACLOFEN
     Dosage: 75.06 MCG/DAY
     Route: 037
  2. LIORESAL [Suspect]
     Active Substance: BACLOFEN
     Dosage: 99.86 MCG/DAY
     Route: 037
     Dates: start: 20130312
  3. LIORESAL [Suspect]
     Active Substance: BACLOFEN
     Dosage: 135.06 MCG/DAY
     Route: 037
     Dates: start: 20130329
  4. BACLOFEN. [Suspect]
     Active Substance: BACLOFEN
     Route: 048
  5. BACLOFEN. [Suspect]
     Active Substance: BACLOFEN
     Route: 048
     Dates: start: 20130322
  6. LIORESAL [Suspect]
     Active Substance: BACLOFEN
     Dosage: 120.87 MCG/DAY
     Route: 037
     Dates: start: 20130322
  7. LIORESAL [Suspect]
     Active Substance: BACLOFEN
     Dosage: 126.25 MCG/DAY
     Route: 037
     Dates: start: 20130329
  8. LIORESAL [Suspect]
     Active Substance: BACLOFEN
     Dosage: 125.23 MCG/DAY
     Route: 037
     Dates: start: 20130323
  9. LIORESAL [Suspect]
     Active Substance: BACLOFEN
     Dosage: 86.87 MCG/DAY
     Route: 037
     Dates: start: 20130308
  10. LIORESAL [Suspect]
     Active Substance: BACLOFEN
     Dosage: 110.12 MCG/DAY
     Route: 037
     Dates: start: 20130317
  11. LIORESAL [Suspect]
     Active Substance: BACLOFEN
     Dosage: 116.56 MCG/DAY
     Route: 037
     Dates: start: 20130319
  12. LIORESAL [Suspect]
     Active Substance: BACLOFEN
     Route: 037
  13. LIORESAL [Suspect]
     Active Substance: BACLOFEN
     Dosage: 144.66 MCG/DAY
     Route: 037
     Dates: start: 20130409
  14. LIORESAL [Suspect]
     Active Substance: BACLOFEN
     Dosage: 165.80 MCG/DAY
     Route: 037
     Dates: start: 20130423
  15. ALEVE [Suspect]
     Active Substance: NAPROXEN SODIUM

REACTIONS (3)
  - Muscle spasms [Unknown]
  - Muscle spasticity [Unknown]
  - Oedema peripheral [Unknown]

NARRATIVE: CASE EVENT DATE: 201303
